FAERS Safety Report 8960677 (Version 1)
Quarter: 2012Q4

REPORT INFORMATION
  Report Type: 
  Country: AU (occurrence: AU)
  Receive Date: 20121212
  Receipt Date: 20121212
  Transmission Date: 20130627
  Serious: Yes (Other)
  Sender: FDA-Public Use
  Company Number: AU-WATSON-2012-21739

PATIENT
  Age: 40 Year
  Sex: Female

DRUGS (2)
  1. CYCLOSPORINE (WATSON LABORATORIES) [Suspect]
     Indication: NODULAR VASCULITIS
     Dosage: UNK, unknown
     Route: 065
     Dates: start: 200208
  2. PREDNISOLONE [Concomitant]
     Indication: NODULAR VASCULITIS
     Dosage: UNK UNK, unknown
     Route: 065
     Dates: start: 199601

REACTIONS (1)
  - Fluid overload [Recovering/Resolving]
